FAERS Safety Report 5346095-2 (Version None)
Quarter: 2007Q2

REPORT INFORMATION
  Report Type: 
  Country: None (occurrence: None)
  Receive Date: 20070430
  Receipt Date: 20070330
  Transmission Date: 20071010
  Serious: No
  Sender: FDA-Public Use
  Company Number: 262369

PATIENT
  Age: 51 Year
  Sex: Male
  Weight: 88.4 kg

DRUGS (6)
  1. LEVEMIR [Suspect]
     Indication: DIABETES MELLITUS
     Dosage: SUBCUTANEOUS
     Route: 058
     Dates: start: 20060220
  2. LANTUS [Concomitant]
  3. HUMALOG [Concomitant]
  4. CRESTOR [Concomitant]
  5. ENALAPRIL (ENALAPRIL) [Concomitant]
  6. ASPIRIN [Concomitant]

REACTIONS (1)
  - GLYCOSYLATED HAEMOGLOBIN INCREASED [None]
